FAERS Safety Report 25607682 (Version 1)
Quarter: 2025Q3

REPORT INFORMATION
  Report Type: Spontaneous
  Country: AU (occurrence: AU)
  Receive Date: 20250725
  Receipt Date: 20250725
  Transmission Date: 20251020
  Serious: Yes (Other)
  Sender: TAKEDA
  Company Number: AU-TAKEDA-2025TUS065073

PATIENT
  Age: 49 Year
  Sex: Male

DRUGS (14)
  1. HUMAN IMMUNOGLOBULIN G [Suspect]
     Active Substance: HUMAN IMMUNOGLOBULIN G
     Indication: Pyoderma gangrenosum
  2. METHOTREXATE [Suspect]
     Active Substance: METHOTREXATE
     Indication: Pyoderma gangrenosum
     Dosage: 10 MILLIGRAM, 1/WEEK
  3. CYCLOSPORINE [Suspect]
     Active Substance: CYCLOSPORINE
     Indication: Pyoderma gangrenosum
     Dosage: 3 MILLIGRAM/KILOGRAM, QD
  4. CYCLOSPORINE [Suspect]
     Active Substance: CYCLOSPORINE
     Dosage: 3.5 MILLIGRAM/KILOGRAM, QD
  5. METHYLPREDNISOLONE [Suspect]
     Active Substance: METHYLPREDNISOLONE
     Indication: Pyoderma gangrenosum
     Dosage: 500 MILLIGRAM, QD
  6. METHYLPREDNISOLONE [Suspect]
     Active Substance: METHYLPREDNISOLONE
     Dosage: 500 MILLIGRAM, QD
  7. MYCOPHENOLATE MOFETIL [Suspect]
     Active Substance: MYCOPHENOLATE MOFETIL
     Indication: Pyoderma gangrenosum
     Dosage: 3 MILLIGRAM, QD
  8. MYCOPHENOLATE MOFETIL [Suspect]
     Active Substance: MYCOPHENOLATE MOFETIL
     Dosage: 2 MILLIGRAM, QD
  9. PREDNISOLONE [Suspect]
     Active Substance: PREDNISOLONE
     Indication: Pyoderma gangrenosum
  10. ADALIMUMAB [Suspect]
     Active Substance: ADALIMUMAB
     Indication: Pyoderma gangrenosum
  11. INFLIXIMAB [Suspect]
     Active Substance: INFLIXIMAB
     Indication: Pyoderma gangrenosum
  12. SECUKINUMAB [Suspect]
     Active Substance: SECUKINUMAB
     Indication: Pyoderma gangrenosum
  13. TACROLIMUS [Suspect]
     Active Substance: TACROLIMUS
     Indication: Pyoderma gangrenosum
     Dosage: 4 MILLIGRAM, QD
  14. USTEKINUMAB [Suspect]
     Active Substance: USTEKINUMAB
     Indication: Pyoderma gangrenosum

REACTIONS (2)
  - Treatment failure [Unknown]
  - Off label use [Unknown]
